FAERS Safety Report 8957808 (Version 2)
Quarter: 2013Q4

REPORT INFORMATION
  Report Type: Spontaneous
  Country: GB (occurrence: GB)
  Receive Date: 20121211
  Receipt Date: 20131008
  Transmission Date: 20140711
  Serious: Yes (Hospitalization, Disabling, Other)
  Sender: FDA-Public Use
  Company Number: GB-TEVA-374767ISR

PATIENT
  Age: 63 Year
  Sex: Male
  Weight: 108.4 kg

DRUGS (4)
  1. TRIMETHOPRIM [Suspect]
     Indication: URINARY TRACT INFECTION
     Dosage: 400 MILLIGRAM DAILY; 5 DAY COURSE
     Route: 048
     Dates: start: 20121011, end: 20121012
  2. IRBESARTAN [Concomitant]
  3. MACRODANTIN [Concomitant]
  4. SIMVASTATIN [Concomitant]

REACTIONS (4)
  - Arthralgia [Unknown]
  - Loss of consciousness [Unknown]
  - Body temperature increased [Unknown]
  - Pain in extremity [Unknown]
